FAERS Safety Report 5024770-7 (Version None)
Quarter: 2006Q2

REPORT INFORMATION
  Report Type: 
  Country: None (occurrence: None)
  Receive Date: 20060426
  Receipt Date: 20060210
  Transmission Date: 20061013
  Serious: Yes (Other)
  Sender: FDA-Public Use
  Company Number: 2006022749

PATIENT
  Sex: Female

DRUGS (4)
  1. LYRICA [Suspect]
     Indication: MEMORY IMPAIRMENT
  2. NEURONTIN [Suspect]
     Indication: BACK PAIN
  3. NEURONTIN [Suspect]
     Indication: MEMORY IMPAIRMENT
  4. NEURONTIN [Suspect]
     Indication: PELVIC PAIN

REACTIONS (3)
  - ADVERSE EVENT [None]
  - BACK PAIN [None]
  - PELVIC PAIN [None]
